FAERS Safety Report 6535224-0 (Version None)
Quarter: 2010Q1

REPORT INFORMATION
  Report Type: 
  Country: None (occurrence: None)
  Receive Date: 20100105
  Receipt Date: 20091223
  Transmission Date: 20100710
  Serious: Yes (Hospitalization)
  Sender: FDA-Public Use
  Company Number: CERZ-1001023

PATIENT
  Age: 25 Year
  Sex: Female
  Weight: 41 kg

DRUGS (1)
  1. CEREZYME [Suspect]
     Indication: GAUCHER'S DISEASE
     Dosage: 1200 U, Q2W, INTRAVENOUS
     Route: 042
     Dates: start: 19940728

REACTIONS (2)
  - BACK PAIN [None]
  - CHEST PAIN [None]
